FAERS Safety Report 5282789-5 (Version None)
Quarter: 2007Q2

REPORT INFORMATION
  Report Type: 
  Country: None (occurrence: None)
  Receive Date: 20070402
  Receipt Date: 20070326
  Transmission Date: 20071010
  Serious: Yes (Hospitalization, Other)
  Sender: FDA-Public Use
  Company Number: FR-ELI_LILLY_AND_COMPANY-FR200703005159

PATIENT
  Age: 78 Year
  Sex: Male
  Weight: 92 kg

DRUGS (4)
  1. GEMZAR [Suspect]
     Indication: BLADDER CANCER RECURRENT
     Dosage: 1000 MG/M2, OTHER
     Route: 042
     Dates: start: 20061206
  2. ELOXATINE /FRA/ [Concomitant]
     Indication: TRANSITIONAL CELL CARCINOMA
     Dosage: 80 MG/M2, OTHER
     Route: 042
     Dates: start: 20061206
  3. SECTRAL [Concomitant]
     Indication: HYPERTENSION
     Dosage: UNK, UNKNOWN
     Route: 065
  4. PREVISCAN [Concomitant]
     Indication: ATRIAL FIBRILLATION
     Dosage: UNK, UNKNOWN
     Route: 065

REACTIONS (6)
  - BLOOD CREATININE INCREASED [None]
  - GAMMA-GLUTAMYLTRANSFERASE INCREASED [None]
  - HEPATOCELLULAR DAMAGE [None]
  - SEPSIS [None]
  - URINARY TRACT INFECTION [None]
  - VASCULAR PURPURA [None]
